FAERS Safety Report 15794307 (Version 1)
Quarter: 2019Q1

REPORT INFORMATION
  Report Type: Spontaneous
  Country: RO (occurrence: RO)
  Receive Date: 20190107
  Receipt Date: 20190107
  Transmission Date: 20190417
  Serious: Yes (Hospitalization, Other)
  Sender: FDA-Public Use
  Company Number: RO-PFIZER INC-2018527755

PATIENT
  Age: 50 Year
  Sex: Male

DRUGS (3)
  1. GENTAMICIN. [Suspect]
     Active Substance: GENTAMICIN
     Indication: MENINGITIS BACTERIAL
     Dosage: 7 DAYS OF EMPIRIC ANTIBIOTIC TREATMENT
  2. CEFTRIAXONE SODIUM. [Suspect]
     Active Substance: CEFTRIAXONE SODIUM
     Indication: MENINGITIS BACTERIAL
     Dosage: 7 DAYS OF EMPIRIC ANTIBIOTIC TREATMENT
  3. METRONIDAZOLE. [Suspect]
     Active Substance: METRONIDAZOLE
     Indication: MENINGITIS BACTERIAL
     Dosage: 7 DAYS OF EMPIRIC ANTIBIOTIC TREATMENT

REACTIONS (9)
  - Eyelid ptosis [Unknown]
  - Strabismus [Unknown]
  - Inappropriate antidiuretic hormone secretion [Unknown]
  - Musculoskeletal stiffness [Unknown]
  - Condition aggravated [Unknown]
  - Coma [Unknown]
  - Nystagmus [Unknown]
  - Hyponatraemia [Unknown]
  - Ataxia [Unknown]
